FAERS Safety Report 22611771 (Version 1)
Quarter: 2023Q2

REPORT INFORMATION
  Report Type: Spontaneous
  Country: DE (occurrence: DE)
  Receive Date: 20230616
  Receipt Date: 20230616
  Transmission Date: 20230721
  Serious: Yes (Other)
  Sender: FDA-Public Use
  Company Number: DE-ANIPHARMA-2023-DE-000105

PATIENT
  Age: 92 Year
  Sex: Male

DRUGS (1)
  1. CANDESARTAN [Suspect]
     Active Substance: CANDESARTAN
     Indication: Product used for unknown indication
     Route: 065
     Dates: start: 2018, end: 202303

REACTIONS (2)
  - Pharyngeal swelling [Not Recovered/Not Resolved]
  - Dyspnoea [Not Recovered/Not Resolved]
